FAERS Safety Report 17013364 (Version 1)
Quarter: 2019Q4

REPORT INFORMATION
  Report Type: Spontaneous
  Country: US (occurrence: US)
  Receive Date: 20191002
  Receipt Date: 20191002
  Transmission Date: 20200122
  Serious: Yes (Hospitalization)
  Sender: FDA-Public Use
  Company Number: None

PATIENT
  Age: 68 Year
  Sex: Female

DRUGS (17)
  1. VITAMIN D3 [Concomitant]
     Active Substance: CHOLECALCIFEROL
  2. FLUOXETINE [Concomitant]
     Active Substance: FLUOXETINE HYDROCHLORIDE
  3. DETROL [Concomitant]
     Active Substance: TOLTERODINE TARTRATE
  4. METOPROLOL. [Concomitant]
     Active Substance: METOPROLOL
  5. NEURONTIN [Concomitant]
     Active Substance: GABAPENTIN
  6. LISINOPRIL. [Concomitant]
     Active Substance: LISINOPRIL
  7. ALPRAZOLAM. [Concomitant]
     Active Substance: ALPRAZOLAM
  8. GLIP/METFORMIN [Concomitant]
  9. HYDROCHJLOROT [Concomitant]
  10. AMLOPDIPINE [Concomitant]
  11. AMPYRA [Concomitant]
     Active Substance: DALFAMPRIDINE
  12. COPAXONE [Concomitant]
     Active Substance: GLATIRAMER ACETATE
  13. NYSTATIN. [Concomitant]
     Active Substance: NYSTATIN
  14. DALFAMPRIDINE 10MG [Suspect]
     Active Substance: DALFAMPRIDINE
     Indication: MULTIPLE SCLEROSIS
     Route: 048
     Dates: start: 20190222
  15. BACLOFEN. [Concomitant]
     Active Substance: BACLOFEN
  16. BOTOX [Concomitant]
     Active Substance: ONABOTULINUMTOXINA
  17. TRIAMCINOLONE [Concomitant]
     Active Substance: TRIAMCINOLONE

REACTIONS (1)
  - Sepsis [None]
